FAERS Safety Report 23864799 (Version 1)
Quarter: 2024Q2

REPORT INFORMATION
  Report Type: Spontaneous
  Country: US (occurrence: US)
  Receive Date: 20240516
  Receipt Date: 20240516
  Transmission Date: 20240715
  Serious: Yes (Hospitalization, Other)
  Sender: FDA-Public Use
  Company Number: US-PAIPHARMA-2024-US-028464

PATIENT
  Age: 30 Year
  Sex: Female

DRUGS (2)
  1. CYCLOSPORINE [Suspect]
     Active Substance: CYCLOSPORINE
     Indication: Autoimmune hepatitis
  2. PREDNISONE [Concomitant]
     Active Substance: PREDNISONE
     Dosage: 40 MG ONCE DAILY

REACTIONS (1)
  - Organising pneumonia [Recovered/Resolved]
